FAERS Safety Report 9031758 (Version 2)
Quarter: 2013Q1

REPORT INFORMATION
  Report Type: Spontaneous
  Country: US (occurrence: US)
  Receive Date: 20130124
  Receipt Date: 20130314
  Transmission Date: 20140127
  Serious: Yes (Other)
  Sender: FDA-Public Use
  Company Number: US-BRISTOL-MYERS SQUIBB COMPANY-17300799

PATIENT
  Age: 55 Year
  Sex: Female

DRUGS (1)
  1. ABATACEPT SUBQ INJECTION 125MG/ML [Suspect]
     Dosage: INTERRUPTED ON AUG?RESTARTED IN JAN-2013

REACTIONS (2)
  - Foot operation [Unknown]
  - Wound dehiscence [Recovered/Resolved]
